FAERS Safety Report 19267889 (Version 1)
Quarter: 2021Q2

REPORT INFORMATION
  Report Type: Spontaneous
  Country: FR (occurrence: FR)
  Receive Date: 20210517
  Receipt Date: 20210517
  Transmission Date: 20210717
  Serious: Yes (Hospitalization)
  Sender: FDA-Public Use
  Company Number: FR-SEATTLE GENETICS-2021SGN02718

PATIENT
  Age: 15 Year
  Sex: Male
  Weight: 47.3 kg

DRUGS (2)
  1. ADCETRIS [Suspect]
     Active Substance: BRENTUXIMAB VEDOTIN
     Indication: HODGKIN^S DISEASE
     Dosage: 80 MILLIGRAM
     Route: 041
     Dates: start: 20210412
  2. OPDIVO [Concomitant]
     Active Substance: NIVOLUMAB
     Dosage: 1 DOSAGE FORM
     Route: 041
     Dates: start: 20210329

REACTIONS (1)
  - Hypersensitivity [Recovered/Resolved]

NARRATIVE: CASE EVENT DATE: 20210412
